FAERS Safety Report 10405096 (Version 3)
Quarter: 2015Q2

REPORT INFORMATION
  Report Type: Report from Study
  Country: US (occurrence: US)
  Receive Date: 20140825
  Receipt Date: 20150410
  Transmission Date: 20150821
  Serious: Yes (Hospitalization)
  Sender: FDA-Public Use
  Company Number: US-ALEXION-A201403132

PATIENT

DRUGS (1)
  1. SOLIRIS [Suspect]
     Active Substance: ECULIZUMAB
     Indication: PRODUCT USED FOR UNKNOWN INDICATION
     Dosage: UNK
     Route: 042

REACTIONS (14)
  - Unevaluable event [Unknown]
  - Abdominal distension [Unknown]
  - Thrombosis [Unknown]
  - Fatigue [Not Recovered/Not Resolved]
  - Blood pressure increased [Unknown]
  - Peripheral swelling [Unknown]
  - Swelling [Unknown]
  - Abdominal pain [Unknown]
  - Diarrhoea [Unknown]
  - Gastric disorder [Unknown]
  - White blood cell count increased [Not Recovered/Not Resolved]
  - Blister [Unknown]
  - Vaginal haemorrhage [Unknown]
  - Pain [Unknown]

NARRATIVE: CASE EVENT DATE: 20140813
